FAERS Safety Report 6997664-5 (Version None)
Quarter: 2010Q3

REPORT INFORMATION
  Report Type: 
  Country: None (occurrence: None)
  Receive Date: 20100918
  Receipt Date: 20091112
  Transmission Date: 20110219
  Serious: No
  Sender: FDA-Public Use
  Company Number: US-WYE-H12171109

PATIENT
  Sex: Female

DRUGS (1)
  1. ALAVERT [Suspect]
     Dosage: UNKNOWN DOSE X 1
     Route: 048
     Dates: start: 20091112, end: 20091112

REACTIONS (1)
  - NASAL CONGESTION [None]
